FAERS Safety Report 7541468 (Version 4)
Quarter: 2012Q4

REPORT INFORMATION
  Report Type: 
  Country: US (occurrence: US)
  Receive Date: 20100815
  Receipt Date: 20121121
  Transmission Date: 20130627
  Serious: Yes (Other)
  Sender: FDA-Public Use
  Company Number: US-BAYER-201030099NA

PATIENT
  Age: 53 Year
  Sex: Female
  Weight: 85 kg

DRUGS (40)
  1. TRASYLOL [Suspect]
     Indication: PRODUCT USED FOR UNKNOWN INDICATION
     Dosage: Test dose: 1mL followed by 200mL pump prime
     Dates: start: 20050503, end: 20050503
  2. TRASYLOL [Suspect]
     Indication: PRODUCT USED FOR UNKNOWN INDICATION
     Dosage: Loading dose: [Amount illegible] followed by 50mL/hr continuous
     Dates: start: 20050503
  3. LANTUS [Concomitant]
     Dosage: 14 u, HS
     Route: 058
  4. PRANDIN [Concomitant]
     Dosage: 2mg before meals
     Route: 048
  5. SYNTHROID [Concomitant]
     Dosage: 15 mg, QD
     Route: 048
  6. NEXIUM [Concomitant]
     Dosage: 40 mg, QD
     Route: 048
  7. LISINOPRIL [Concomitant]
     Dosage: 40 mg, QD
     Route: 048
  8. LIPITOR [Concomitant]
     Dosage: 20 mg, QD
     Route: 048
  9. PLAVIX [Concomitant]
     Dosage: 75 mg, QD
     Route: 048
  10. TRICOR [Concomitant]
     Dosage: 145 mg, QD
     Route: 048
  11. TOPROL XL [Concomitant]
     Dosage: 50 mg, QD
     Route: 048
  12. AVANDAMET [Concomitant]
     Dosage: 4/1000 mg BID
     Route: 048
  13. NEURONTIN [Concomitant]
     Dosage: 800 mg, TID
     Route: 048
  14. CLONAZEPAM [Concomitant]
     Dosage: 1 mg, HS
     Route: 048
  15. REMERON [Concomitant]
     Dosage: 30 mg, HS
     Route: 048
  16. METHADONE [Concomitant]
     Dosage: 15 mg, TID
     Route: 048
  17. COLACE [Concomitant]
     Dosage: 100 mg, BID
     Route: 048
  18. DECADRON [Concomitant]
     Dosage: UNK
     Dates: start: 20050503, end: 20050503
  19. PEPCID [Concomitant]
     Dosage: UNK
     Dates: start: 20050503, end: 20050503
  20. VERSED [Concomitant]
     Dosage: UNK
     Dates: start: 20050503, end: 20050503
  21. SEVOFLURANE [Concomitant]
     Dosage: UNK
     Dates: start: 20050503, end: 20050503
  22. HEPARIN [Concomitant]
     Dosage: UNK
     Dates: start: 20050503, end: 20050503
  23. PROTAMINE [Concomitant]
     Dosage: UNK
     Dates: start: 20050503, end: 20050503
  24. SODIUM BICARBONATE [Concomitant]
     Dosage: UNK
     Dates: start: 20050503, end: 20050503
  25. MANNITOL [Concomitant]
     Dosage: UNK
     Dates: start: 20050503, end: 20050503
  26. ZINACEF [Concomitant]
     Dosage: UNK
     Dates: start: 20050503, end: 20050503
  27. ETOMIDATE [Concomitant]
     Dosage: UNK
     Dates: start: 20050503, end: 20050503
  28. PANCURONIUM [Concomitant]
     Dosage: UNK
     Dates: start: 20050503, end: 20050503
  29. XYLOCAINE [Concomitant]
     Dosage: UNK
     Dates: start: 20050503, end: 20050503
  30. ATIVAN [Concomitant]
     Dosage: UNK
     Dates: start: 20050503, end: 20050503
  31. PRIMACOR [Concomitant]
     Dosage: UNK
     Dates: start: 20050503, end: 20050503
  32. BICARBONAT [Concomitant]
     Dosage: UNK
     Dates: start: 20050503, end: 20050503
  33. INSULIN [Concomitant]
     Dosage: UNK
     Dates: start: 20050503
  34. LEVOPHED [Concomitant]
     Dosage: UNK
     Dates: start: 20050503
  35. PRECEDEX [Concomitant]
     Dosage: UNK
     Dates: start: 20050503
  36. CALCIUM CHLORIDE [Concomitant]
     Dosage: UNK
     Dates: start: 20050503, end: 20050503
  37. PACKED RED BLOOD CELLS [Concomitant]
     Dosage: UNK
     Dates: start: 20050503, end: 20050503
  38. PLATELETS, HUMAN BLOOD [Concomitant]
     Dosage: 6 pack
     Dates: start: 20050503, end: 20050503
  39. CELL SAVER [Concomitant]
     Dosage: UNK
  40. PLASMA [Concomitant]
     Dosage: UNK

REACTIONS (12)
  - Anxiety [Unknown]
  - Fear [Unknown]
  - Pain [Unknown]
  - Depression [Unknown]
  - Injury [Unknown]
  - Anxiety [Unknown]
  - Disability [Unknown]
  - Emotional distress [Unknown]
  - Anhedonia [Unknown]
  - Renal injury [Unknown]
  - Renal failure [Unknown]
  - Multi-organ failure [Unknown]
